FAERS Safety Report 8152982-2 (Version None)
Quarter: 2012Q1

REPORT INFORMATION
  Report Type: 
  Country: None (occurrence: None)
  Receive Date: 20120221
  Receipt Date: 20120211
  Transmission Date: 20120608
  Serious: Yes (Other)
  Sender: FDA-Public Use
  Company Number: US-US-EMD SERONO, INC.-7071104

PATIENT
  Sex: Female

DRUGS (4)
  1. IBUPROFEN [Concomitant]
     Indication: PREMEDICATION
  2. REBIF [Suspect]
     Indication: MULTIPLE SCLEROSIS
     Route: 058
     Dates: start: 20061207
  3. LORTAB [Concomitant]
     Indication: PAIN
     Dates: start: 20110714
  4. KEFLEX [Concomitant]
     Indication: INFECTION
     Dates: start: 20110714

REACTIONS (17)
  - MENSTRUATION IRREGULAR [None]
  - RHINITIS [None]
  - HYPERSENSITIVITY [None]
  - STRESS [None]
  - CHRONIC SINUSITIS [None]
  - MALAISE [None]
  - MUSCLE SPASTICITY [None]
  - PRECANCEROUS CELLS PRESENT [None]
  - MULTIPLE SCLEROSIS RELAPSE [None]
  - NEUROMA [None]
  - IRRITABLE BOWEL SYNDROME [None]
  - DRUG INTOLERANCE [None]
  - INFLUENZA LIKE ILLNESS [None]
  - INCORRECT DOSE ADMINISTERED [None]
  - CATARACT [None]
  - INJECTION SITE PAIN [None]
  - INJECTION SITE INDURATION [None]
